FAERS Safety Report 25848702 (Version 1)
Quarter: 2025Q3

REPORT INFORMATION
  Report Type: Other
  Country: US (occurrence: US)
  Receive Date: 20250925
  Receipt Date: 20250925
  Transmission Date: 20251021
  Serious: No
  Sender: SIGMA TAU
  Company Number: US-LEADIANT BIOSCIENCES, INC.-2025LBI000133

PATIENT
  Sex: Male

DRUGS (8)
  1. MATULANE [Suspect]
     Active Substance: PROCARBAZINE HYDROCHLORIDE
     Indication: Brain neoplasm malignant
     Route: 048
     Dates: start: 20250108
  2. TESTOSTERONE [Concomitant]
     Active Substance: TESTOSTERONE
  3. ATORVASTATIN [Concomitant]
     Active Substance: ATORVASTATIN
  4. DULOXETINE [Concomitant]
     Active Substance: DULOXETINE
  5. LEVOTHYROXINE [Concomitant]
     Active Substance: LEVOTHYROXINE
  6. NIFEDIPINE [Concomitant]
     Active Substance: NIFEDIPINE
  7. OXYCODONE AND ACETAMINOPHEN [Concomitant]
     Active Substance: ACETAMINOPHEN\OXYCODONE HYDROCHLORIDE
  8. SODIUM CHLORIDE [Concomitant]
     Active Substance: SODIUM CHLORIDE

REACTIONS (2)
  - White blood cell count decreased [Unknown]
  - Red blood cell count decreased [Unknown]
